FAERS Safety Report 5972473-4 (Version None)
Quarter: 2008Q4

REPORT INFORMATION
  Report Type: 
  Country: None (occurrence: None)
  Receive Date: 20081125
  Receipt Date: 20081118
  Transmission Date: 20090506
  Serious: Yes (Hospitalization)
  Sender: FDA-Public Use
  Company Number: SP02128

PATIENT
  Age: 76 Year
  Sex: Female

DRUGS (4)
  1. VISICOL [Suspect]
     Indication: ENDOSCOPY
     Dosage: (50 GM), ORAL
     Route: 048
     Dates: start: 20080729, end: 20080729
  2. ROSUVASTATIN CALCIUM [Concomitant]
  3. ETHYL ICOSAPENTATE [Concomitant]
  4. DIPYRIDAMOLE [Concomitant]

REACTIONS (1)
  - COLITIS ISCHAEMIC [None]
